FAERS Safety Report 6212480-X (Version None)
Quarter: 2009Q2

REPORT INFORMATION
  Report Type: 
  Country: None (occurrence: None)
  Receive Date: 20090603
  Receipt Date: 20090525
  Transmission Date: 20091009
  Serious: Yes (Hospitalization)
  Sender: FDA-Public Use
  Company Number: PT-JNJFOC-20081200278

PATIENT
  Age: 58 Year
  Sex: Female
  Weight: 85 kg

DRUGS (4)
  1. REMICADE [Suspect]
     Dosage: REPORTED AS BOTH 5.5 MG/KG AND 5.8 MG/KG
     Route: 042
  2. REMICADE [Suspect]
     Indication: PSORIASIS
     Route: 042
  3. METHOTREXATE [Concomitant]
     Route: 048
  4. METHOTREXATE [Concomitant]
     Route: 048

REACTIONS (9)
  - CUSHING'S SYNDROME [None]
  - DRUG INEFFECTIVE [None]
  - DYSPNOEA EXERTIONAL [None]
  - GASTROINTESTINAL DISORDER [None]
  - GLOMERULONEPHRITIS [None]
  - NEPHRITIC SYNDROME [None]
  - NEPHROLITHIASIS [None]
  - PSORIASIS [None]
  - RENAL FAILURE [None]
